FAERS Safety Report 17045878 (Version 1)
Quarter: 2019Q4

REPORT INFORMATION
  Report Type: Spontaneous
  Country: GB (occurrence: GB)
  Receive Date: 20191118
  Receipt Date: 20191118
  Transmission Date: 20200122
  Serious: Yes (Other)
  Sender: FDA-Public Use
  Company Number: GB-TEVA-2019-GB-1137711

PATIENT
  Age: 13 Year
  Sex: Male

DRUGS (1)
  1. MONTELUKAST [Suspect]
     Active Substance: MONTELUKAST SODIUM
     Indication: ASTHMA
     Dosage: 5 MG
     Route: 048
     Dates: start: 20161118, end: 20170404

REACTIONS (3)
  - Suicidal ideation [Recovered/Resolved]
  - Mood altered [Recovered/Resolved]
  - Depression [Recovered/Resolved]
